FAERS Safety Report 7289077-6 (Version None)
Quarter: 2011Q1

REPORT INFORMATION
  Report Type: 
  Country: None (occurrence: None)
  Receive Date: 20110211
  Receipt Date: 20110203
  Transmission Date: 20110831
  Serious: Yes (Other)
  Sender: FDA-Public Use
  Company Number: DE-B.I. PHARMACEUTICALS,INC./RIDGEFIELD-2010-DE-06763DE

PATIENT
  Sex: Male
  Weight: 81 kg

DRUGS (1)
  1. PRADAXA [Suspect]
     Indication: THROMBOSIS PROPHYLAXIS
     Dosage: 220 MG
     Route: 048
     Dates: start: 20100902, end: 20100927

REACTIONS (3)
  - PAIN IN EXTREMITY [None]
  - THROMBOSIS [None]
  - VENOUS THROMBOSIS [None]
